FAERS Safety Report 6151192-8 (Version None)
Quarter: 2009Q2

REPORT INFORMATION
  Report Type: 
  Country: None (occurrence: None)
  Receive Date: 20090408
  Receipt Date: 20090408
  Transmission Date: 20091009
  Serious: Yes (Other)
  Sender: FDA-Public Use
  Company Number: None

PATIENT
  Age: 30 Year
  Sex: Female
  Weight: 73.9363 kg

DRUGS (1)
  1. MIRENA [Suspect]
     Indication: CONTRACEPTION
     Dosage: BOTH
     Dates: start: 20090210

REACTIONS (5)
  - ALOPECIA [None]
  - ANOREXIA [None]
  - FATIGUE [None]
  - MALAISE [None]
  - MIDDLE INSOMNIA [None]
